FAERS Safety Report 21547405 (Version 2)
Quarter: 2023Q1

REPORT INFORMATION
  Report Type: Report from Study
  Country: US (occurrence: US)
  Receive Date: 20221103
  Receipt Date: 20230102
  Transmission Date: 20230418
  Serious: No
  Sender: FDA-Public Use
  Company Number: US-ABBVIE-4185093

PATIENT
  Sex: Female

DRUGS (5)
  1. HUMIRA [Suspect]
     Active Substance: ADALIMUMAB
     Indication: Crohn^s disease
     Route: 058
  2. HUMIRA [Suspect]
     Active Substance: ADALIMUMAB
     Route: 058
  3. Pfizer/BioNTech [Concomitant]
     Indication: COVID-19 immunisation
     Dosage: FIRST DOSE?FREQUENCY 1-1-ONCE
     Route: 030
     Dates: start: 20200101, end: 20200101
  4. Pfizer/BioNTech [Concomitant]
     Indication: COVID-19 immunisation
     Dosage: SECOND DOSE?FREQUENCY 1-1-ONCE
     Route: 030
     Dates: start: 20210501, end: 20210501
  5. Pfizer/BioNTech [Concomitant]
     Indication: COVID-19 immunisation
     Dosage: THIRD/BOOSTER DOSE?FREQUENCY 1-1-ONCE
     Route: 030
     Dates: start: 20210601, end: 20210601

REACTIONS (6)
  - Upper respiratory tract infection [Unknown]
  - Sinusitis [Unknown]
  - Stress [Unknown]
  - Immunodeficiency [Unknown]
  - COVID-19 [Unknown]
  - Cough [Unknown]
